FAERS Safety Report 10671701 (Version 1)
Quarter: 2014Q4

REPORT INFORMATION
  Report Type: Spontaneous
  Country: CN (occurrence: CN)
  Receive Date: 20141223
  Receipt Date: 20141223
  Transmission Date: 20150529
  Serious: Yes (Other)
  Sender: FDA-Public Use
  Company Number: CN-PFIZER INC-2014348371

PATIENT
  Age: 72 Year
  Sex: Male

DRUGS (1)
  1. XALKORI [Suspect]
     Active Substance: CRIZOTINIB
     Indication: LUNG NEOPLASM MALIGNANT
     Dosage: 500 MG, 1X/DAY (250 MG X60 TABLETS PER BOX, 2 TABLETS DAILY FOR 30 DAYS)
     Route: 048
     Dates: start: 2014

REACTIONS (2)
  - Myocardial necrosis marker increased [Unknown]
  - Renal impairment [Unknown]

NARRATIVE: CASE EVENT DATE: 2014
